FAERS Safety Report 6047008-0 (Version None)
Quarter: 2009Q1

REPORT INFORMATION
  Report Type: 
  Country: None (occurrence: None)
  Receive Date: 20090122
  Receipt Date: 20090115
  Transmission Date: 20090719
  Serious: Yes (Hospitalization)
  Sender: FDA-Public Use
  Company Number: US-MERCK-0901USA01845

PATIENT
  Age: 74 Year
  Sex: Male
  Weight: 91 kg

DRUGS (6)
  1. DECADRON [Suspect]
     Route: 048
  2. REVLIMID [Concomitant]
     Indication: MULTIPLE MYELOMA
     Route: 048
     Dates: start: 20080201
  3. COSOPT [Concomitant]
     Route: 047
  4. DIOVAN [Concomitant]
     Route: 065
  5. COREG [Concomitant]
     Route: 065
  6. LUMIGAN [Concomitant]
     Route: 065

REACTIONS (1)
  - DEEP VEIN THROMBOSIS [None]
